FAERS Safety Report 5636710-8 (Version None)
Quarter: 2008Q1

REPORT INFORMATION
  Report Type: 
  Country: None (occurrence: None)
  Receive Date: 20080225
  Receipt Date: 20080218
  Transmission Date: 20080703
  Serious: Yes (Hospitalization)
  Sender: FDA-Public Use
  Company Number: US-ASTRAZENECA-2008UW03245

PATIENT
  Age: 19929 Day
  Sex: Male
  Weight: 76.6 kg

DRUGS (14)
  1. SEROQUEL [Suspect]
     Indication: SCHIZOPHRENIA
     Route: 048
     Dates: start: 20070320, end: 20070408
  2. SEROQUEL [Suspect]
     Indication: ACUTE PSYCHOSIS
     Route: 048
     Dates: start: 20070320, end: 20070408
  3. BIFEPRUNOX [Suspect]
     Indication: SCHIZOPHRENIA, PARANOID TYPE
     Route: 048
     Dates: start: 20060809, end: 20060809
  4. BIFEPRUNOX [Suspect]
     Route: 048
     Dates: start: 20060810, end: 20060810
  5. BIFEPRUNOX [Suspect]
     Route: 048
     Dates: start: 20060811, end: 20060811
  6. BIFEPRUNOX [Suspect]
     Route: 048
     Dates: start: 20060812, end: 20060812
  7. BIFEPRUNOX [Suspect]
     Route: 048
     Dates: start: 20060813, end: 20060813
  8. BIFEPRUNOX [Suspect]
     Route: 048
     Dates: start: 20060814, end: 20060814
  9. BIFEPRUNOX [Suspect]
     Route: 048
     Dates: start: 20060815, end: 20060815
  10. BIFEPRUNOX [Suspect]
     Route: 048
     Dates: start: 20060816, end: 20061227
  11. BIFEPRUNOX [Suspect]
     Route: 048
     Dates: start: 20061228, end: 20070301
  12. ABILIFY [Suspect]
     Indication: SCHIZOPHRENIA
     Route: 048
     Dates: start: 20070328, end: 20070404
  13. ABILIFY [Suspect]
     Indication: PSYCHOTIC DISORDER
     Route: 048
     Dates: start: 20070328, end: 20070404
  14. COMPAZINE [Concomitant]
     Dosage: DAILY PRN

REACTIONS (5)
  - BRADYPHRENIA [None]
  - HEART RATE DECREASED [None]
  - LETHARGY [None]
  - SCHIZOPHRENIA [None]
  - VENTRICULAR EXTRASYSTOLES [None]
